FAERS Safety Report 7360683-3 (Version None)
Quarter: 2011Q1

REPORT INFORMATION
  Report Type: 
  Country: None (occurrence: None)
  Receive Date: 20110318
  Receipt Date: 20091114
  Transmission Date: 20110831
  Serious: Yes (Hospitalization, Other)
  Sender: FDA-Public Use
  Company Number: US-BAYER-200939448NA

PATIENT
  Sex: Male
  Weight: 66.213 kg

DRUGS (40)
  1. PITRESSIN [Concomitant]
     Indication: COAGULOPATHY
  2. TRASYLOL [Suspect]
     Indication: AORTIC SURGERY
     Dosage: 2000,000 U, UNK
     Route: 042
     Dates: start: 20060517, end: 20060518
  3. PLASMA [Concomitant]
     Indication: HYPOVOLAEMIC SHOCK
     Dosage: UNK
     Dates: start: 20060518
  4. PLATELETS [Concomitant]
     Indication: POST PROCEDURAL HAEMORRHAGE
  5. SOLU-MEDROL [Concomitant]
     Dosage: 1 G, UNK
     Dates: start: 20060517, end: 20060518
  6. MANNITOL [Concomitant]
  7. TRASYLOL [Suspect]
     Indication: AORTIC VALVE REPLACEMENT
     Dosage: 50 CC/HOUR
     Route: 041
     Dates: start: 20060517, end: 20060518
  8. EPINEPHRINE [Concomitant]
     Indication: CARDIOGENIC SHOCK
     Dosage: UNK
     Route: 042
     Dates: start: 20060517, end: 20060518
  9. PRIMACOR [Concomitant]
     Indication: CARDIOGENIC SHOCK
     Dosage: 8 CC/HR.
     Route: 042
     Dates: start: 20060517, end: 20060517
  10. PITRESSIN [Concomitant]
     Indication: CARDIOGENIC SHOCK
     Dosage: UNK
     Dates: start: 20060519
  11. LASIX [Concomitant]
     Indication: OLIGURIA
     Dosage: 20 MG, UNK
     Route: 042
     Dates: start: 20060517, end: 20060518
  12. IBUPROFEN [Concomitant]
     Indication: HEADACHE
     Dosage: UNK
     Route: 048
  13. IBUPROFEN [Concomitant]
     Indication: BACK PAIN
  14. ZINACEF [Concomitant]
     Dosage: 3 G, UNK
     Route: 042
     Dates: start: 20060517
  15. TRASYLOL [Suspect]
     Indication: CORONARY ARTERY EMBOLISM
  16. ATIVAN [Concomitant]
     Indication: ALCOHOL WITHDRAWAL SYNDROME
  17. PLASMA [Concomitant]
     Indication: POST PROCEDURAL HAEMORRHAGE
  18. FACTOR VII [Concomitant]
     Indication: HYPOVOLAEMIC SHOCK
     Dosage: UNK
     Dates: start: 20060518
  19. BLOOD CELLS, PACKED HUMAN [Concomitant]
     Indication: CARDIOGENIC SHOCK
  20. ASPIRIN [Concomitant]
     Dosage: 81 MG, UNK
     Route: 048
  21. NITROGLYCERIN [Concomitant]
     Dosage: UNK
     Route: 042
     Dates: start: 20060517, end: 20060517
  22. SOLU-MEDROL [Concomitant]
     Dosage: 125 MG/500MG
     Dates: start: 20060517, end: 20060518
  23. TRASYLOL [Suspect]
     Indication: CORONARY ARTERY BYPASS
     Dosage: 200 ML, UNK
     Route: 042
     Dates: start: 20060517, end: 20060518
  24. ATIVAN [Concomitant]
     Indication: TACHYCARDIA
     Dosage: UNK
     Dates: start: 20060518
  25. PLASMA [Concomitant]
     Indication: CARDIOGENIC SHOCK
  26. PLATELETS [Concomitant]
     Indication: HYPOVOLAEMIC SHOCK
     Dosage: UNK
     Dates: start: 20060518
  27. BLOOD CELLS, PACKED HUMAN [Concomitant]
     Indication: HYPOVOLAEMIC SHOCK
     Dosage: 6 U, UNK
     Route: 042
     Dates: start: 20060517, end: 20060519
  28. HEPARIN [Concomitant]
     Dosage: UNK
     Route: 042
     Dates: start: 20060517, end: 20060518
  29. LEVOPHED [Concomitant]
     Dosage: 15-40 MCG/MIN
     Route: 042
     Dates: start: 20060517
  30. DOBUTAMINE [Concomitant]
     Indication: CARDIOGENIC SHOCK
     Dosage: UNK
     Route: 042
     Dates: start: 20060518
  31. FACTOR VII [Concomitant]
     Indication: CARDIOGENIC SHOCK
  32. BLOOD CELLS, PACKED HUMAN [Concomitant]
     Indication: POST PROCEDURAL HAEMORRHAGE
  33. PITRESSIN [Concomitant]
     Indication: POST PROCEDURAL HAEMORRHAGE
  34. AMIODARONE HCL [Concomitant]
     Dosage: 300MG/150MG
     Route: 042
     Dates: start: 20060517, end: 20060517
  35. AMICAR [Concomitant]
     Dosage: 5 G/HOUR
     Route: 042
     Dates: start: 20060517, end: 20060517
  36. PROTAMINE SULFATE [Concomitant]
     Dosage: 500 MG X2
     Dates: start: 20060517, end: 20060518
  37. AMICAR [Concomitant]
     Dosage: 10 G, UNK
     Dates: start: 20060517, end: 20060518
  38. NEO SYNEPHRIN [Concomitant]
     Indication: CARDIOGENIC SHOCK
  39. PLATELETS [Concomitant]
     Indication: CARDIOGENIC SHOCK
  40. FACTOR VII [Concomitant]
     Indication: POST PROCEDURAL HAEMORRHAGE

REACTIONS (13)
  - RENAL FAILURE [None]
  - ANXIETY [None]
  - ANHEDONIA [None]
  - STRESS [None]
  - MULTI-ORGAN FAILURE [None]
  - RENAL IMPAIRMENT [None]
  - UNEVALUABLE EVENT [None]
  - RENAL INJURY [None]
  - EMOTIONAL DISTRESS [None]
  - FEAR [None]
  - PAIN [None]
  - CEREBROVASCULAR ACCIDENT [None]
  - INJURY [None]
